FAERS Safety Report 15160052 (Version 1)
Quarter: 2018Q3

REPORT INFORMATION
  Report Type: Spontaneous
  Country: ES (occurrence: ES)
  Receive Date: 20180718
  Receipt Date: 20180718
  Transmission Date: 20181010
  Serious: Yes (Hospitalization, Other)
  Sender: FDA-Public Use
  Company Number: ES-SA-2018SA157289

PATIENT
  Age: 45 Year
  Sex: Female
  Weight: 43 kg

DRUGS (5)
  1. ETHAMBUTOL [Suspect]
     Active Substance: ETHAMBUTOL HYDROCHLORIDE
  2. ISONIAZID. [Suspect]
     Active Substance: ISONIAZID
     Indication: PULMONARY TUBERCULOSIS
     Dosage: 300 MG, QD
  3. CORTISONE [Concomitant]
     Active Substance: CORTISONE\HYDROCORTISONE
  4. OFLOXACIN. [Concomitant]
     Active Substance: OFLOXACIN
  5. RIFAMPICIN [Suspect]
     Active Substance: RIFAMPIN
     Indication: PULMONARY TUBERCULOSIS

REACTIONS (6)
  - Photosensitivity reaction [Unknown]
  - Lupus-like syndrome [Unknown]
  - Arthralgia [Unknown]
  - Thrombocytopenia [Recovered/Resolved]
  - Pericardial effusion [Unknown]
  - Pyrexia [Unknown]
